FAERS Safety Report 14007535 (Version 1)
Quarter: 2017Q3

REPORT INFORMATION
  Report Type: Report from Study
  Country: CO (occurrence: CO)
  Receive Date: 20170925
  Receipt Date: 20170925
  Transmission Date: 20171128
  Serious: Yes (Other)
  Sender: FDA-Public Use
  Company Number: CO-EMD SERONO-E2B_80082315

PATIENT
  Age: 7 Year
  Sex: Male

DRUGS (2)
  1. SAIZEN [Suspect]
     Active Substance: SOMATROPIN
     Route: 058
     Dates: start: 201707
  2. SAIZEN [Suspect]
     Active Substance: SOMATROPIN
     Indication: CHRONIC KIDNEY DISEASE
     Route: 058
     Dates: start: 20110202

REACTIONS (1)
  - Blood glucose increased [Unknown]

NARRATIVE: CASE EVENT DATE: 201707
